FAERS Safety Report 17561439 (Version 1)
Quarter: 2020Q1

REPORT INFORMATION
  Report Type: Spontaneous
  Country: US (occurrence: US)
  Receive Date: 20200319
  Receipt Date: 20200319
  Transmission Date: 20200409
  Serious: No
  Sender: FDA-Public Use
  Company Number: US-RISING PHARMACEUTICALS, INC.-2020RIS00085

PATIENT
  Sex: Male
  Weight: 133.79 kg

DRUGS (2)
  1. ZILEUTON. [Suspect]
     Active Substance: ZILEUTON
     Indication: PULMONARY FIBROSIS
     Dosage: 1200 MG, 2X/DAY
     Route: 048
     Dates: start: 2005, end: 201912
  2. 20 UNKNOWN MEDICATIONS [Concomitant]

REACTIONS (2)
  - Lung disorder [Not Recovered/Not Resolved]
  - Off label use [Recovered/Resolved]

NARRATIVE: CASE EVENT DATE: 2005
